FAERS Safety Report 4389822-0 (Version None)
Quarter: 2004Q2

REPORT INFORMATION
  Report Type: 
  Country: None (occurrence: None)
  Receive Date: 20040628
  Receipt Date: 20040621
  Transmission Date: 20050107
  Serious: Yes (Life-Threatening)
  Sender: FDA-Public Use
  Company Number: 2004UW12799

PATIENT
  Age: 73 Year
  Sex: Male

DRUGS (6)
  1. ELAVIL [Suspect]
     Indication: DEPRESSION
     Dosage: 10 MG DAILY PO
     Route: 048
     Dates: start: 20040528, end: 20040611
  2. ELAVIL [Suspect]
     Indication: INSOMNIA
     Dosage: 10 MG DAILY PO
     Route: 048
     Dates: start: 20040528, end: 20040611
  3. ELAVIL [Suspect]
     Indication: DEPRESSION
     Dosage: 220 MG ONCE PO
     Route: 048
     Dates: start: 20040610, end: 20040610
  4. ELAVIL [Suspect]
     Indication: INSOMNIA
     Dosage: 220 MG ONCE PO
     Route: 048
     Dates: start: 20040610, end: 20040610
  5. ACETAMINOPHEN [Suspect]
     Dosage: 1 DF ONCE
     Dates: start: 20040610, end: 20040610
  6. FLUTICASONE PROPIONATE [Concomitant]

REACTIONS (4)
  - CONDITION AGGRAVATED [None]
  - DEPRESSION [None]
  - INTENTIONAL OVERDOSE [None]
  - SUICIDAL IDEATION [None]
